FAERS Safety Report 7367030-1 (Version None)
Quarter: 2011Q1

REPORT INFORMATION
  Report Type: 
  Country: None (occurrence: None)
  Receive Date: 20110322
  Receipt Date: 20110315
  Transmission Date: 20110831
  Serious: Yes (Other)
  Sender: FDA-Public Use
  Company Number: US-AMGEN-USASP2011014257

PATIENT
  Age: 58 Year
  Sex: Female

DRUGS (3)
  1. ENBREL [Suspect]
     Dosage: 50 MG, QWK
     Dates: start: 20110228
  2. TREXALL [Concomitant]
     Dosage: 3 MG, QWK
     Dates: start: 20110226
  3. ENBREL [Suspect]
     Indication: RHEUMATOID ARTHRITIS
     Dosage: 50 MG, QWK

REACTIONS (5)
  - CONFUSIONAL STATE [None]
  - RHEUMATOID ARTHRITIS [None]
  - TREMOR [None]
  - EYE INFECTION [None]
  - DIZZINESS [None]
